FAERS Safety Report 15296474 (Version 3)
Quarter: 2020Q4

REPORT INFORMATION
  Report Type: Report from Study
  Country: AU (occurrence: AU)
  Receive Date: 20180820
  Receipt Date: 20201013
  Transmission Date: 20210113
  Serious: Yes (Hospitalization)
  Sender: FDA-Public Use
  Company Number: AU-JNJFOC-20180123468

PATIENT
  Age: 20 Year
  Sex: Female
  Weight: 80 kg

DRUGS (6)
  1. CEFALEXIN [Concomitant]
     Active Substance: CEPHALEXIN
     Indication: ECZEMA
     Route: 048
     Dates: start: 20171023
  2. USTEKINUMAB [Suspect]
     Active Substance: USTEKINUMAB
     Indication: COLITIS ULCERATIVE
     Route: 058
     Dates: start: 20161212, end: 20171122
  3. MERCAPTOPURINE. [Concomitant]
     Active Substance: MERCAPTOPURINE
     Indication: COLITIS ULCERATIVE
     Route: 048
     Dates: start: 20150722
  4. MESALAZINE [Concomitant]
     Active Substance: MESALAMINE
     Indication: COLITIS ULCERATIVE
     Route: 048
     Dates: start: 20150505
  5. ALLOPURINOL. [Concomitant]
     Active Substance: ALLOPURINOL
     Route: 050
     Dates: start: 2016
  6. PREDNISOLONE. [Concomitant]
     Active Substance: PREDNISOLONE
     Indication: COLITIS ULCERATIVE
     Route: 048
     Dates: start: 201611

REACTIONS (1)
  - Pelvic inflammatory disease [Recovered/Resolved]

NARRATIVE: CASE EVENT DATE: 20180108
